FAERS Safety Report 10528712 (Version 1)
Quarter: 2014Q4

REPORT INFORMATION
  Report Type: Spontaneous
  Country: US (occurrence: None)
  Receive Date: 20141017
  Receipt Date: 20141017
  Transmission Date: 20150528
  Serious: No
  Sender: FDA-Public Use
  Company Number: None

PATIENT

DRUGS (1)
  1. BUPIVACAINE [Suspect]
     Active Substance: BUPIVACAINE
     Dates: start: 201410

REACTIONS (2)
  - Product quality issue [None]
  - No therapeutic response [None]

NARRATIVE: CASE EVENT DATE: 20141003
